FAERS Safety Report 15436832 (Version 1)
Quarter: 2018Q3

REPORT INFORMATION
  Report Type: Report from Study
  Country: US (occurrence: US)
  Receive Date: 20180927
  Receipt Date: 20180927
  Transmission Date: 20181010
  Serious: No
  Sender: FDA-Public Use
  Company Number: PHEH2018US038276

PATIENT
  Sex: Female

DRUGS (1)
  1. SANDIMMUNE [Suspect]
     Active Substance: CYCLOSPORINE
     Indication: PRODUCT USED FOR UNKNOWN INDICATION
     Dosage: UNK
     Route: 065

REACTIONS (7)
  - Generalised oedema [Unknown]
  - Eye swelling [Unknown]
  - Peripheral swelling [Unknown]
  - Nephropathy [Unknown]
  - Disease recurrence [Unknown]
  - Feeling abnormal [Unknown]
  - Malaise [Unknown]
